FAERS Safety Report 8168248-0 (Version None)
Quarter: 2012Q1

REPORT INFORMATION
  Report Type: 
  Country: None (occurrence: None)
  Receive Date: 20120227
  Receipt Date: 20120223
  Transmission Date: 20120608
  Serious: Yes (Life-Threatening)
  Sender: FDA-Public Use
  Company Number: PHHY2012FR015974

PATIENT
  Sex: Male

DRUGS (6)
  1. VALIUM [Concomitant]
     Indication: SCHIZOPHRENIA
  2. DEPAKENE [Concomitant]
     Indication: SCHIZOPHRENIA
  3. TRIMEPRAZINE TARTRATE [Suspect]
     Indication: SCHIZOPHRENIA
     Route: 048
  4. TERCIAN [Suspect]
     Indication: SCHIZOPHRENIA
     Dosage: 100 MG, UNK
     Route: 048
  5. CLOZAPINE [Suspect]
     Dosage: 2 DF, TID
     Dates: start: 20111201, end: 20120121
  6. ZOLPIDEM [Concomitant]
     Indication: SCHIZOPHRENIA

REACTIONS (4)
  - NECROTISING COLITIS [None]
  - LYMPHOCYTIC INFILTRATION [None]
  - HAEMORRHAGIC INFARCTION [None]
  - INTESTINAL ISCHAEMIA [None]
